FAERS Safety Report 11603950 (Version 1)
Quarter: 2015Q4

REPORT INFORMATION
  Report Type: Spontaneous
  Country: US (occurrence: None)
  Receive Date: 20151006
  Receipt Date: 20151006
  Transmission Date: 20160304
  Serious: Yes (Hospitalization)
  Sender: FDA-Public Use
  Company Number: None

PATIENT
  Age: 38 Year
  Sex: Female
  Weight: 57.61 kg

DRUGS (2)
  1. TAMOXIFEN [Concomitant]
     Active Substance: TAMOXIFEN
  2. TRASTUZUMAB EMTANSINE [Suspect]
     Active Substance: ADO-TRASTUZUMAB EMTANSINE
     Indication: BREAST CANCER STAGE I
     Route: 042
     Dates: start: 20141006, end: 20150928

REACTIONS (7)
  - Vascular rupture [None]
  - Menorrhagia [None]
  - Tachycardia [None]
  - Haematocrit decreased [None]
  - Rectal haemorrhage [None]
  - Eye disorder [None]
  - Eye swelling [None]

NARRATIVE: CASE EVENT DATE: 20151002
